FAERS Safety Report 7237497-8 (Version None)
Quarter: 2011Q1

REPORT INFORMATION
  Report Type: 
  Country: None (occurrence: None)
  Receive Date: 20110118
  Receipt Date: 20110110
  Transmission Date: 20110831
  Serious: Yes (Hospitalization)
  Sender: FDA-Public Use
  Company Number: 2009AC000440

PATIENT
  Age: 85 Year
  Sex: Female
  Weight: 45.3597 kg

DRUGS (47)
  1. DIGOXIN [Suspect]
     Dosage: 0.125 MG;QD;PO
     Route: 048
     Dates: start: 20070126, end: 20080501
  2. ALLOPURINOL [Concomitant]
  3. DIOVAN [Concomitant]
  4. VITAMIN B COMPLEX WITH FOLIC ACID [Concomitant]
  5. ASPIRIN [Concomitant]
  6. FOSAMAX PLUS D [Concomitant]
  7. RESTASIS [Concomitant]
  8. TRAMADOL HCL [Concomitant]
  9. SULFAMETHOXAZOLE AND TRIMETHOPRIM [Concomitant]
  10. NIASPAN [Concomitant]
  11. FOLIC ACID [Concomitant]
  12. IRON [Concomitant]
  13. ERGOCALCIFEROL [Concomitant]
  14. FUROSEMIDE [Concomitant]
  15. PREMARIN [Concomitant]
  16. ADVICOR [Concomitant]
  17. VITAMIN B-12 [Concomitant]
  18. LOVENOX [Concomitant]
  19. DIGOXIN [Suspect]
     Dosage: 0.125 MG;TIW;PO
     Route: 048
     Dates: start: 20080512
  20. LOVASTATIN [Concomitant]
  21. CALCIUM [Concomitant]
  22. AMOXICILLIN [Concomitant]
  23. ALENDRONATE SODIUM [Concomitant]
  24. VALSARTAN [Concomitant]
  25. ASCORBIC ACID [Concomitant]
  26. LEVAQUIN [Concomitant]
  27. LASIX [Concomitant]
  28. CLONIDINE HCL [Concomitant]
  29. SODIUM BICARBONATE [Concomitant]
  30. DILTIAZEM [Concomitant]
  31. AVAPRO [Concomitant]
  32. FOSAMAX [Concomitant]
  33. AMLODIPINE [Concomitant]
  34. CEFUROXIME [Concomitant]
  35. PANTAPROZOLE [Concomitant]
  36. FERROUS SULFATE TAB [Concomitant]
  37. MULTI-VITAMINS [Concomitant]
  38. PROCRIT [Concomitant]
  39. CARVEDILOL [Concomitant]
  40. CYANOCOBALAMIN [Concomitant]
  41. COUMADIN [Concomitant]
  42. LOPRESSOR [Concomitant]
  43. NIACIN [Concomitant]
  44. VITAMIN D [Concomitant]
  45. METOPROLOL [Concomitant]
  46. NITROGLYCERIN [Concomitant]
  47. FLUCONAZOLE [Concomitant]

REACTIONS (56)
  - ACTIVITIES OF DAILY LIVING IMPAIRED [None]
  - VOMITING [None]
  - CONFUSIONAL STATE [None]
  - ARRHYTHMIA [None]
  - HEART RATE DECREASED [None]
  - ATRIAL FIBRILLATION [None]
  - ANURIA [None]
  - FALL [None]
  - WEIGHT INCREASED [None]
  - RENAL FAILURE CHRONIC [None]
  - CONDITION AGGRAVATED [None]
  - VISION BLURRED [None]
  - DECUBITUS ULCER [None]
  - WEIGHT DECREASED [None]
  - UNEVALUABLE EVENT [None]
  - DIARRHOEA [None]
  - NEPHROSCLEROSIS [None]
  - BLOOD PRESSURE SYSTOLIC INCREASED [None]
  - GOUT [None]
  - LACERATION [None]
  - EXCORIATION [None]
  - VITAMIN D DEFICIENCY [None]
  - HYPERSOMNIA [None]
  - ASTHENIA [None]
  - URINARY TRACT INFECTION [None]
  - SUPRAVENTRICULAR EXTRASYSTOLES [None]
  - HYPERPARATHYROIDISM [None]
  - TOXICITY TO VARIOUS AGENTS [None]
  - APATHY [None]
  - HYPONATRAEMIA [None]
  - OEDEMA PERIPHERAL [None]
  - TACHYCARDIA [None]
  - VENTRICULAR EXTRASYSTOLES [None]
  - MYOCARDIAL ISCHAEMIA [None]
  - DEHYDRATION [None]
  - HALLUCINATION [None]
  - DECREASED APPETITE [None]
  - NODAL RHYTHM [None]
  - PRODUCT FORMULATION ISSUE [None]
  - INAPPROPRIATE SCHEDULE OF DRUG ADMINISTRATION [None]
  - BUNDLE BRANCH BLOCK BILATERAL [None]
  - LETHARGY [None]
  - SPEECH DISORDER [None]
  - OVERDOSE [None]
  - PALPITATIONS [None]
  - EJECTION FRACTION DECREASED [None]
  - IMMOBILE [None]
  - ABASIA [None]
  - NAUSEA [None]
  - HYPERTENSIVE NEPHROPATHY [None]
  - SUPRAVENTRICULAR TACHYCARDIA [None]
  - TROPONIN INCREASED [None]
  - SOCIAL AVOIDANT BEHAVIOUR [None]
  - PRODUCT QUALITY ISSUE [None]
  - SEPSIS [None]
  - STRESS URINARY INCONTINENCE [None]
